FAERS Safety Report 10100623 (Version 1)
Quarter: 2014Q2

REPORT INFORMATION
  Report Type: Spontaneous
  Country: KR (occurrence: KR)
  Receive Date: 20140423
  Receipt Date: 20140423
  Transmission Date: 20141212
  Serious: Yes (Hospitalization)
  Sender: FDA-Public Use
  Company Number: PHHY2014KR046628

PATIENT
  Age: 68 Year
  Sex: Female

DRUGS (13)
  1. AMOXICILLIN [Suspect]
  2. RANITIDINE [Concomitant]
  3. REBAMIPIDE [Concomitant]
  4. MOSAPRIDE [Concomitant]
  5. CYSTEINE [Concomitant]
  6. LIMAPROST [Concomitant]
  7. DICHLOZID [Concomitant]
  8. LOSARTAN [Concomitant]
  9. ASPIRIN [Concomitant]
  10. CELECOXIB [Concomitant]
  11. SARPOGRELATE [Concomitant]
  12. NABUMETONE [Concomitant]
  13. DIAZEPAM [Concomitant]

REACTIONS (16)
  - Allergic myocarditis [Recovered/Resolved]
  - Chest pain [Recovered/Resolved]
  - Rales [Recovered/Resolved]
  - Pruritus [Recovered/Resolved]
  - Erythema [Recovered/Resolved]
  - Skin lesion [Recovered/Resolved]
  - Electrocardiogram ST segment elevation [Recovered/Resolved]
  - Left ventricular hypertrophy [Recovered/Resolved]
  - Ventricular hypokinesia [Recovered/Resolved]
  - Ejection fraction decreased [Recovered/Resolved]
  - Eosinophilia [Recovered/Resolved]
  - Dyspnoea [Recovered/Resolved]
  - Pulmonary congestion [Recovered/Resolved]
  - Amyloidosis [Recovered/Resolved]
  - Sarcoidosis [Recovered/Resolved]
  - Eosinophilic myocarditis [Recovered/Resolved]
